FAERS Safety Report 4658390-0 (Version None)
Quarter: 2005Q2

REPORT INFORMATION
  Report Type: 
  Country: None (occurrence: None)
  Receive Date: 20050509
  Receipt Date: 20050429
  Transmission Date: 20051028
  Serious: Yes (Other)
  Sender: FDA-Public Use
  Company Number: 2005054333

PATIENT
  Age: 47 Year
  Sex: Male

DRUGS (3)
  1. XALATAN [Suspect]
     Indication: OCULAR HYPERTENSION
     Dosage: 2 DROP (1 DROP, QHS), OPHTHALMIC
     Route: 047
     Dates: start: 20050228, end: 20050331
  2. XALATAN [Suspect]
     Indication: OPEN ANGLE GLAUCOMA
     Dosage: 2 DROP (1 DROP, QHS), OPHTHALMIC
     Route: 047
     Dates: start: 20050228, end: 20050331
  3. XALATAN [Suspect]
     Indication: PIGMENTARY GLAUCOMA
     Dosage: 2 DROP (1 DROP, QHS), OPHTHALMIC
     Route: 047
     Dates: start: 20050228, end: 20050331

REACTIONS (1)
  - RETINAL DETACHMENT [None]
